FAERS Safety Report 5600553-1 (Version None)
Quarter: 2008Q1

REPORT INFORMATION
  Report Type: 
  Country: None (occurrence: None)
  Receive Date: 20080123
  Receipt Date: 20080102
  Transmission Date: 20080703
  Serious: No
  Sender: FDA-Public Use
  Company Number: US-BOEHRINGER INGELHEIM PHARMACEUTICALS, INC.-2008-BP-00189BP

PATIENT
  Sex: Male

DRUGS (2)
  1. CATAPRES-TTS-1 [Suspect]
     Indication: HYPERTENSION
     Route: 061
     Dates: start: 20070901
  2. METOPROLOL TARTRATE [Concomitant]
     Indication: HEART RATE IRREGULAR

REACTIONS (3)
  - EXTRASYSTOLES [None]
  - HEART RATE DECREASED [None]
  - LIBIDO DECREASED [None]
